FAERS Safety Report 4358137-1 (Version None)
Quarter: 2004Q2

REPORT INFORMATION
  Report Type: 
  Country: None (occurrence: None)
  Receive Date: 20040510
  Receipt Date: 20040427
  Transmission Date: 20050107
  Serious: Yes (Other)
  Sender: FDA-Public Use
  Company Number: S04-USA-02668-01

PATIENT
  Age: 65 Year
  Sex: Male

DRUGS (4)
  1. NAMENDA [Suspect]
     Indication: SENILE DEMENTIA
     Dosage: 5 MG BID PO
     Route: 048
     Dates: start: 20040401, end: 20040427
  2. NAMENDA [Suspect]
     Indication: SENILE DEMENTIA
     Dosage: 5 MG QD PO
     Route: 048
     Dates: start: 20040401, end: 20040401
  3. AMARYL [Concomitant]
  4. ARICEPT [Concomitant]

REACTIONS (2)
  - FEELING ABNORMAL [None]
  - HYPOGLYCAEMIA [None]
